FAERS Safety Report 13252914 (Version 1)
Quarter: 2017Q1

REPORT INFORMATION
  Report Type: Spontaneous
  Country: GB (occurrence: GB)
  Receive Date: 20170220
  Receipt Date: 20170220
  Transmission Date: 20170428
  Serious: Yes (Life-Threatening, Other)
  Sender: FDA-Public Use
  Company Number: PHFR2017GB001273

PATIENT
  Age: 55 Year
  Sex: Female

DRUGS (3)
  1. FINGYA [Suspect]
     Active Substance: FINGOLIMOD
     Indication: MULTIPLE SCLEROSIS
     Dosage: 0.5 MG, UNK
     Route: 048
     Dates: start: 20130724, end: 20161031
  2. PREGABALIN. [Concomitant]
     Active Substance: PREGABALIN
     Indication: PAIN
     Dosage: 500 MG, UNK
     Route: 048
     Dates: start: 2015
  3. GABAPENTIN. [Concomitant]
     Active Substance: GABAPENTIN
     Indication: PAIN
     Dosage: 1500 MG, UNK
     Route: 065
     Dates: start: 2005, end: 2015

REACTIONS (1)
  - Superficial spreading melanoma stage unspecified [Recovered/Resolved]
